FAERS Safety Report 12822044 (Version 4)
Quarter: 2016Q4

REPORT INFORMATION
  Report Type: Report from Study
  Country: FR (occurrence: FR)
  Receive Date: 20161007
  Receipt Date: 20161208
  Transmission Date: 20170207
  Serious: Yes (Hospitalization, Other)
  Sender: FDA-Public Use
  Company Number: FR-AMGEN-FRANI2016105658

PATIENT
  Age: 72 Year
  Sex: Female

DRUGS (18)
  1. DEXAMETHASONE. [Concomitant]
     Active Substance: DEXAMETHASONE
     Indication: PLASMA CELL MYELOMA
     Dosage: 40 MG, D1, 8, 15, 22
     Route: 048
     Dates: start: 2015
  2. VERSATIS [Concomitant]
     Active Substance: LIDOCAINE
     Dosage: UNK
  3. INEXIUM [Concomitant]
     Active Substance: ESOMEPRAZOLE
     Dosage: 40 UNK
  4. CARFILZOMIB [Suspect]
     Active Substance: CARFILZOMIB
     Indication: PLASMA CELL MYELOMA
     Dosage: 48 MG, D1, 2, 8, 9, 15, 16
     Route: 042
     Dates: start: 20160707, end: 201607
  5. FLUTICASONE [Concomitant]
     Active Substance: FLUTICASONE\FLUTICASONE PROPIONATE
     Dosage: UNK, TWO INHALATIONS DAILY
  6. PROZAC [Concomitant]
     Active Substance: FLUOXETINE HYDROCHLORIDE
     Dosage: 20 MG, TWO IN THE MORNING
  7. STRESAM [Concomitant]
     Active Substance: ETIFOXINE
     Dosage: UNK, TWO IN THE EVENING
  8. BISOCE [Concomitant]
     Active Substance: BISOPROLOL
     Dosage: UNK, 1.25 IN THE MORNING
  9. TRIATEC [Concomitant]
     Active Substance: RAMIPRIL
     Dosage: UNK UNK, 1.25 QD
  10. CARFILZOMIB [Suspect]
     Active Substance: CARFILZOMIB
     Dosage: 48 MG, DAY ONE, TWO, EIGHT, NINE, FIFTEEN, AND SIXTEEN IN DAY ONE TO DAY TWENTY EIGHT
     Route: 042
     Dates: start: 201607, end: 20160718
  11. CYNOMEL [Concomitant]
     Active Substance: LIOTHYRONINE SODIUM
     Dosage: UNK, 0.025 IN THE MORNING
  12. CARFILZOMIB [Suspect]
     Active Substance: CARFILZOMIB
     Dosage: 48 MG, DAY ONE, TWO, EIGHT, NINE, FIFTEEN, AND SIXTEEN IN DAY ONE TO DAY TWENTY EIGHT
     Route: 042
     Dates: start: 20161121
  13. DEXAMETHASONE. [Concomitant]
     Active Substance: DEXAMETHASONE
     Dosage: 40 MG, UNK
     Route: 042
     Dates: start: 20150522
  14. KARDEGIC [Concomitant]
     Active Substance: ASPIRIN LYSINE
     Dosage: 75 MG, QD
  15. DOLIPRANE [Concomitant]
     Active Substance: ACETAMINOPHEN
     Dosage: UNK
  16. GAVISCON [Concomitant]
     Active Substance: ALUMINUM HYDROXIDE\MAGNESIUM CARBONATE
     Dosage: 40 UNK
  17. REVLIMID [Concomitant]
     Active Substance: LENALIDOMIDE
     Indication: PLASMA CELL MYELOMA
     Dosage: 25 MG, FROM DAY ONE TO DAY TWENTY ONE
     Route: 048
     Dates: start: 20160707
  18. LEVOTHYROX [Concomitant]
     Active Substance: LEVOTHYROXINE
     Dosage: UNK, 125 IN THE MORNING

REACTIONS (12)
  - Lymphadenopathy mediastinal [Unknown]
  - Bronchial disorder [Unknown]
  - Pneumonia [Recovered/Resolved]
  - Constipation [Unknown]
  - Lung disorder [Recovered/Resolved]
  - Pulmonary mass [Unknown]
  - Ocular icterus [Unknown]
  - Vomiting [Unknown]
  - Hepatomegaly [Unknown]
  - Spinal compression fracture [Unknown]
  - Hiatus hernia [Unknown]
  - Thrombocytopenia [Unknown]

NARRATIVE: CASE EVENT DATE: 201607
